FAERS Safety Report 8115419-5 (Version None)
Quarter: 2012Q1

REPORT INFORMATION
  Report Type: 
  Country: None (occurrence: None)
  Receive Date: 20120118
  Receipt Date: 20120110
  Transmission Date: 20120608
  Serious: Yes (Other)
  Sender: FDA-Public Use
  Company Number: 2012030772

PATIENT
  Age: 50 Year
  Sex: Female
  Weight: 45.3597 kg

DRUGS (12)
  1. SODIUM CHLORIDE [Concomitant]
  2. ZEMAIRA [Suspect]
     Indication: BLOOD DISORDER
     Dosage: (60 MG/KG 1X/WEEK,869 MG/20 ML VIAL;0.08 ML/KG/MIN(3.7 ML/MIN.) INTRAVENOUS(NOT OTHERWISE SPECIFIED)
     Route: 042
     Dates: start: 20050401
  3. ZEMAIRA [Suspect]
     Indication: ALPHA-1 ANTI-TRYPSIN DEFICIENCY
     Dosage: (60 MG/KG 1X/WEEK,869 MG/20 ML VIAL;0.08 ML/KG/MIN(3.7 ML/MIN.) INTRAVENOUS(NOT OTHERWISE SPECIFIED)
     Route: 042
     Dates: start: 20050401
  4. HEPARIN [Concomitant]
  5. SYMBICORT [Concomitant]
  6. ALBUTEROL [Concomitant]
  7. OXYGEN [Concomitant]
  8. PROTONIX [Concomitant]
  9. VITAMIN D [Concomitant]
  10. ASPIRIN [Concomitant]
  11. SPIRIVA [Concomitant]
  12. SINGULAIR [Concomitant]

REACTIONS (1)
  - LUNG INFECTION [None]
